FAERS Safety Report 13225152 (Version 1)
Quarter: 2017Q1

REPORT INFORMATION
  Report Type: Spontaneous
  Country: US (occurrence: US)
  Receive Date: 20170213
  Receipt Date: 20170213
  Transmission Date: 20170428
  Serious: No
  Sender: FDA-Public Use
  Company Number: US-ASTRAZENECA-2017SE12741

PATIENT
  Age: 22040 Day
  Sex: Male
  Weight: 59 kg

DRUGS (14)
  1. AMBIEN [Concomitant]
     Active Substance: ZOLPIDEM TARTRATE
  2. METOPROLOL TARTRATE. [Concomitant]
     Active Substance: METOPROLOL TARTRATE
     Indication: CARDIAC DISORDER
     Route: 048
  3. LUNESTA [Concomitant]
     Active Substance: ESZOPICLONE
     Indication: SLEEP DISORDER
     Dosage: 3.0MG AS REQUIRED
     Route: 048
  4. FENTANYL TRANSDERMAL SYSTEM [Concomitant]
     Active Substance: FENTANYL
     Indication: PAIN
  5. SERTRALINE [Concomitant]
     Active Substance: SERTRALINE HYDROCHLORIDE
     Indication: DEPRESSION
     Route: 048
  6. WARFARIN [Concomitant]
     Active Substance: WARFARIN
  7. OXYMORPHONE [Concomitant]
     Active Substance: OXYMORPHONE
     Indication: PAIN
     Dosage: 10.0MG AS REQUIRED
     Route: 048
     Dates: start: 2016
  8. DIAZEPAM. [Concomitant]
     Active Substance: DIAZEPAM
     Indication: MUSCLE SPASMS
     Dosage: 10.0MG AS REQUIRED
     Route: 048
     Dates: start: 2012
  9. BUPROPION. [Concomitant]
     Active Substance: BUPROPION
     Indication: DEPRESSION
     Route: 048
  10. XARELTO [Concomitant]
     Active Substance: RIVAROXABAN
     Indication: BLOOD DISORDER
     Route: 048
     Dates: start: 2016
  11. MODAFENIL [Concomitant]
     Indication: SOMNOLENCE
     Route: 048
  12. ANDRODERM PATCH [Concomitant]
     Indication: BLOOD TESTOSTERONE DECREASED
  13. MOVANTIK [Suspect]
     Active Substance: NALOXEGOL OXALATE
     Indication: CONSTIPATION
     Route: 048
     Dates: start: 201509
  14. HYDROMORPHONE [Concomitant]
     Active Substance: HYDROMORPHONE

REACTIONS (4)
  - Abnormal faeces [Unknown]
  - Nervousness [Unknown]
  - Drug screen positive [Unknown]
  - Memory impairment [Unknown]

NARRATIVE: CASE EVENT DATE: 20161013
